FAERS Safety Report 5868781-8 (Version None)
Quarter: 2008Q3

REPORT INFORMATION
  Report Type: 
  Country: None (occurrence: None)
  Receive Date: 20080902
  Receipt Date: 20080902
  Transmission Date: 20090109
  Serious: Yes (Other)
  Sender: FDA-Public Use
  Company Number: None

PATIENT
  Age: 28 Year
  Sex: Female
  Weight: 54.4316 kg

DRUGS (1)
  1. ZOLOFT [Suspect]
     Indication: ANXIETY
     Dosage: 50MG DAILY PO
     Route: 048
     Dates: start: 20080710, end: 20080801

REACTIONS (13)
  - ALOPECIA [None]
  - CHEST PAIN [None]
  - DISTURBANCE IN ATTENTION [None]
  - DIZZINESS [None]
  - DRUG WITHDRAWAL SYNDROME [None]
  - EATING DISORDER [None]
  - MOTION SICKNESS [None]
  - OBSESSIVE-COMPULSIVE DISORDER [None]
  - OROPHARYNGEAL BLISTERING [None]
  - PARAESTHESIA [None]
  - RASH [None]
  - SKIN WARM [None]
  - VOMITING [None]
